FAERS Safety Report 15499684 (Version 1)
Quarter: 2018Q4

REPORT INFORMATION
  Report Type: Spontaneous
  Country: US (occurrence: US)
  Receive Date: 20181008
  Receipt Date: 20181008
  Transmission Date: 20190205
  Serious: Yes (Other)
  Sender: FDA-Public Use
  Company Number: None

PATIENT
  Age: 61 Year
  Sex: Male

DRUGS (3)
  1. POTASSSIUM CL 20MEQ [Concomitant]
     Dates: start: 20170201
  2. SIMVASTATIN 20MG [Concomitant]
     Active Substance: SIMVASTATIN
     Dates: start: 20170202
  3. LOSARTAN/HCTZ [Suspect]
     Active Substance: HYDROCHLOROTHIAZIDE\LOSARTAN
     Indication: BLOOD PRESSURE MEASUREMENT
     Route: 048
     Dates: start: 20180807, end: 20181007

REACTIONS (5)
  - Pollakiuria [None]
  - Prostatitis [None]
  - Product substitution [None]
  - Urinary tract infection [None]
  - Blood urine present [None]

NARRATIVE: CASE EVENT DATE: 20181008
